FAERS Safety Report 13337173 (Version 1)
Quarter: 2017Q1

REPORT INFORMATION
  Report Type: Spontaneous
  Country: US (occurrence: US)
  Receive Date: 20170314
  Receipt Date: 20170314
  Transmission Date: 20170428
  Serious: Yes (Hospitalization)
  Sender: FDA-Public Use
  Company Number: None

PATIENT
  Age: 74 Year
  Sex: Female
  Weight: 81 kg

DRUGS (2)
  1. ATARAX [Concomitant]
     Active Substance: HYDROXYZINE HYDROCHLORIDE
  2. TYLENOL EXTRA STRENGTH [Suspect]
     Active Substance: ACETAMINOPHEN
     Indication: HEADACHE
     Dosage: 2 GEL CAPS EVERY 6 HOURS ORAL
     Route: 048
     Dates: start: 20170313, end: 20170313

REACTIONS (7)
  - Speech disorder [None]
  - Confusional state [None]
  - Unevaluable event [None]
  - Vomiting [None]
  - Eructation [None]
  - Memory impairment [None]
  - Nausea [None]

NARRATIVE: CASE EVENT DATE: 20170313
